FAERS Safety Report 12385053 (Version 1)
Quarter: 2016Q2

REPORT INFORMATION
  Report Type: Spontaneous
  Country: US (occurrence: None)
  Receive Date: 20160518
  Receipt Date: 20160518
  Transmission Date: 20160815
  Serious: Yes (Hospitalization)
  Sender: FDA-Public Use
  Company Number: None

PATIENT
  Age: 72 Year
  Sex: Female
  Weight: 60 kg

DRUGS (2)
  1. ASPIRIN. [Concomitant]
     Active Substance: ASPIRIN
  2. ELIQUIS [Suspect]
     Active Substance: APIXABAN
     Indication: ATRIAL FIBRILLATION
     Route: 048

REACTIONS (7)
  - Melaena [None]
  - Haemoglobin decreased [None]
  - Presyncope [None]
  - Gastric ulcer [None]
  - Upper gastrointestinal haemorrhage [None]
  - Haematemesis [None]
  - Dyspnoea [None]

NARRATIVE: CASE EVENT DATE: 20160317
